FAERS Safety Report 4963189-1 (Version None)
Quarter: 2006Q2

REPORT INFORMATION
  Report Type: 
  Country: None (occurrence: None)
  Receive Date: 20060405
  Receipt Date: 20050810
  Transmission Date: 20061013
  Serious: Yes (Hospitalization)
  Sender: FDA-Public Use
  Company Number: US-MERCK-0508USA01971

PATIENT
  Age: 65 Year
  Sex: Female
  Weight: 102 kg

DRUGS (4)
  1. VIOXX [Suspect]
     Indication: ARTHRITIS
     Route: 048
     Dates: start: 20020401, end: 20041007
  2. METFORMIN [Concomitant]
     Route: 065
  3. ZOCOR [Concomitant]
     Route: 065
  4. LISINOPRIL [Concomitant]
     Route: 065

REACTIONS (12)
  - ARTHRALGIA [None]
  - BRONCHITIS [None]
  - CARDIAC MURMUR [None]
  - CHRONIC OBSTRUCTIVE PULMONARY DISEASE [None]
  - HAEMORRHAGIC STROKE [None]
  - HYPERLIPIDAEMIA [None]
  - MONARTHRITIS [None]
  - MYOCARDIAL INFARCTION [None]
  - OSTEOARTHRITIS [None]
  - PULMONARY EMBOLISM [None]
  - VISION BLURRED [None]
  - VISUAL ACUITY REDUCED [None]
